FAERS Safety Report 6024857-6 (Version None)
Quarter: 2008Q4

REPORT INFORMATION
  Report Type: 
  Country: None (occurrence: None)
  Receive Date: 20081230
  Receipt Date: 20081230
  Transmission Date: 20090506
  Serious: Yes (Hospitalization)
  Sender: FDA-Public Use
  Company Number: None

PATIENT
  Age: 88 Year
  Sex: Female
  Weight: 68.4932 kg

DRUGS (1)
  1. CARBAMAZEPINE [Suspect]
     Indication: TRIGEMINAL NEURALGIA
     Dosage: 200 MG 1X DAY PERIARTICULAR
     Route: 052
     Dates: start: 20081216, end: 20081222

REACTIONS (7)
  - BLOOD PRESSURE INCREASED [None]
  - CARDIAC ENZYMES INCREASED [None]
  - FALL [None]
  - HEART RATE INCREASED [None]
  - LOSS OF CONTROL OF LEGS [None]
  - MENTAL DISORDER [None]
  - MUSCULAR WEAKNESS [None]
